FAERS Safety Report 5423422-9 (Version None)
Quarter: 2007Q3

REPORT INFORMATION
  Report Type: 
  Country: None (occurrence: None)
  Receive Date: 20070727
  Receipt Date: 20070510
  Transmission Date: 20080115
  Serious: No
  Sender: FDA-Public Use
  Company Number: 263623

PATIENT
  Age: 79 Year
  Sex: Male

DRUGS (2)
  1. LEVEMIR [Suspect]
     Indication: TYPE 2 DIABETES MELLITUS
     Dosage: 5 IU, QD; SUBCUTANEOUS; 15 IU, QD; SUBCUTANEOUS
     Route: 058
     Dates: start: 20070507, end: 20070509
  2. LEVEMIR [Suspect]
     Indication: TYPE 2 DIABETES MELLITUS
     Dosage: 5 IU, QD; SUBCUTANEOUS; 15 IU, QD; SUBCUTANEOUS
     Route: 058
     Dates: start: 20070509

REACTIONS (1)
  - BLOOD GLUCOSE INCREASED [None]
